FAERS Safety Report 20657364 (Version 1)
Quarter: 2022Q1

REPORT INFORMATION
  Report Type: Spontaneous
  Country: US (occurrence: US)
  Receive Date: 20220331
  Receipt Date: 20220331
  Transmission Date: 20220423
  Serious: Yes (Hospitalization)
  Sender: FDA-Public Use
  Company Number: US-AMGEN-USASP2022054325

PATIENT
  Age: 55 Year
  Sex: Female

DRUGS (1)
  1. OTEZLA [Suspect]
     Active Substance: APREMILAST
     Indication: Product used for unknown indication
     Dosage: 60 MILLIGRAM, BID
     Route: 048
     Dates: start: 20211027

REACTIONS (3)
  - Asthenia [Unknown]
  - Cardiac stress test [Unknown]
  - Off label use [Unknown]

NARRATIVE: CASE EVENT DATE: 20211027
